FAERS Safety Report 16039773 (Version 1)
Quarter: 2019Q1

REPORT INFORMATION
  Report Type: Spontaneous
  Country: ES (occurrence: ES)
  Receive Date: 20190306
  Receipt Date: 20190306
  Transmission Date: 20190418
  Serious: Yes (Hospitalization)
  Sender: FDA-Public Use
  Company Number: ES-ACCORD-110434

PATIENT
  Age: 88 Year
  Sex: Female

DRUGS (2)
  1. CAOSINA [Interacting]
     Active Substance: CALCIUM CARBONATE
     Indication: THYROID CANCER
     Dosage: 1 ABOUT EVERY 8 HOURS,STRENGTH:1.000 MG
     Route: 048
     Dates: start: 20100217
  2. HYDROCHLOROTHIAZIDE. [Suspect]
     Active Substance: HYDROCHLOROTHIAZIDE
     Indication: HYPERTENSION
     Dosage: 25MG EVERY 24 HOURS
     Route: 048
     Dates: start: 20180627, end: 20180720

REACTIONS (2)
  - Hypercalcaemia [Recovered/Resolved]
  - Drug interaction [Unknown]

NARRATIVE: CASE EVENT DATE: 20180720
